FAERS Safety Report 5747546-1 (Version None)
Quarter: 2008Q2

REPORT INFORMATION
  Report Type: 
  Country: None (occurrence: None)
  Receive Date: 20080523
  Receipt Date: 20080509
  Transmission Date: 20081010
  Serious: Yes (Hospitalization)
  Sender: FDA-Public Use
  Company Number: US-ELI_LILLY_AND_COMPANY-US200711006711

PATIENT
  Age: 64 Year
  Sex: Female
  Weight: 59.41 kg

DRUGS (13)
  1. FORTEO [Suspect]
     Indication: OSTEOPOROSIS
     Dosage: 20 UNK, UNK
     Dates: start: 20070801
  2. LASIX [Concomitant]
  3. K-DUR [Concomitant]
  4. POLYETHYLENE GLYCOL [Concomitant]
  5. LEVOTHYROXINE SODIUM [Concomitant]
  6. ZOCOR [Concomitant]
  7. SUCRALFATE [Concomitant]
  8. ASPIRIN [Concomitant]
     Dosage: 81 MG, UNK
  9. FLAXSEED OIL [Concomitant]
  10. SLOW-FE /00023503/ [Concomitant]
  11. GLUCOSAMINE [Concomitant]
  12. COUMADIN [Concomitant]
  13. MULTI-VITAMIN [Concomitant]

REACTIONS (1)
  - GASTRIC HAEMORRHAGE [None]
